FAERS Safety Report 4323630-4 (Version None)
Quarter: 2004Q1

REPORT INFORMATION
  Report Type: 
  Country: None (occurrence: None)
  Receive Date: 20040326
  Receipt Date: 20040317
  Transmission Date: 20041129
  Serious: Yes (Other)
  Sender: FDA-Public Use
  Company Number: PHBS2004JP03843

PATIENT
  Sex: Male

DRUGS (4)
  1. NEORAL [Suspect]
     Indication: RENAL TRANSPLANT
     Dosage: 400 MG/DAY
     Route: 048
     Dates: start: 20040308, end: 20040309
  2. NEORAL [Suspect]
     Dosage: 400 MG/DAY
     Route: 048
     Dates: start: 20040313, end: 20040316
  3. SANDIMMUNE [Suspect]
     Indication: RENAL TRANSPLANT
     Dosage: 3 MG/KG/DAY
     Dates: start: 20040310, end: 20040312
  4. CELLCEPT [Concomitant]
     Dosage: 2 G/DAY
     Route: 048
     Dates: start: 20040310, end: 20040316

REACTIONS (1)
  - BLOOD CREATINE PHOSPHOKINASE INCREASED [None]
